FAERS Safety Report 5840299-8 (Version None)
Quarter: 2008Q3

REPORT INFORMATION
  Report Type: 
  Country: None (occurrence: None)
  Receive Date: 20080808
  Receipt Date: 20080808
  Transmission Date: 20090109
  Serious: Yes (Disabling)
  Sender: FDA-Public Use
  Company Number: None

PATIENT
  Age: 36 Year
  Sex: Female
  Weight: 53.5244 kg

DRUGS (1)
  1. MIRENA BAYER HEALTHCARE PHAMRACEUTICALS [Suspect]
     Indication: CONTRACEPTION
     Dates: start: 20070901, end: 20080807

REACTIONS (3)
  - DEVICE MIGRATION [None]
  - INTRA-UTERINE CONTRACEPTIVE DEVICE EXPELLED [None]
  - IUCD COMPLICATION [None]
